FAERS Safety Report 25249014 (Version 6)
Quarter: 2025Q3

REPORT INFORMATION
  Report Type: Report from Study
  Country: US (occurrence: US)
  Receive Date: 20250429
  Receipt Date: 20250814
  Transmission Date: 20251021
  Serious: Yes (Hospitalization, Other)
  Sender: TAKEDA
  Company Number: US-TAKEDA-2025TUS028787

PATIENT
  Sex: Female

DRUGS (43)
  1. IXAZOMIB [Suspect]
     Active Substance: IXAZOMIB
     Indication: Plasma cell myeloma
  2. IXAZOMIB [Suspect]
     Active Substance: IXAZOMIB
  3. IXAZOMIB [Suspect]
     Active Substance: IXAZOMIB
     Dosage: 3 MILLIGRAM, 1/WEEK
  4. IXAZOMIB [Suspect]
     Active Substance: IXAZOMIB
  5. IXAZOMIB [Suspect]
     Active Substance: IXAZOMIB
     Dosage: 3 MILLIGRAM, 1/WEEK
  6. ACETAMINOPHEN [Concomitant]
     Active Substance: ACETAMINOPHEN
  7. ACYCLOVIR [Concomitant]
     Active Substance: ACYCLOVIR
  8. ALBUTEROL SULFATE [Concomitant]
     Active Substance: ALBUTEROL SULFATE
  9. ANORO ELLIPTA [Concomitant]
     Active Substance: UMECLIDINIUM BROMIDE\VILANTEROL TRIFENATATE
  10. ATORVASTATIN CALCIUM [Concomitant]
     Active Substance: ATORVASTATIN CALCIUM
  11. AZITHROMYCIN [Concomitant]
     Active Substance: AZITHROMYCIN
  12. BACLOFEN [Concomitant]
     Active Substance: BACLOFEN
  13. BUMETANIDE [Concomitant]
     Active Substance: BUMETANIDE
  14. BUPROPION HYDROCHLORIDE [Concomitant]
     Active Substance: BUPROPION HYDROCHLORIDE
  15. DEXAMETHASONE [Concomitant]
     Active Substance: DEXAMETHASONE
  16. DOCUSATE SODIUM [Concomitant]
     Active Substance: DOCUSATE SODIUM
  17. FERROUS SULFATE [Concomitant]
     Active Substance: FERROUS SULFATE
  18. LIDOCAINE AND PRILOCAINE [Concomitant]
     Active Substance: LIDOCAINE\PRILOCAINE
  19. LISINOPRIL [Concomitant]
     Active Substance: LISINOPRIL
  20. METOPROLOL SUCCINATE [Concomitant]
     Active Substance: METOPROLOL SUCCINATE
  21. OMEPRAZOLE [Concomitant]
     Active Substance: OMEPRAZOLE
  22. ONDANSETRON [Concomitant]
     Active Substance: ONDANSETRON
  23. POTASSIUM CHLORIDE [Concomitant]
     Active Substance: POTASSIUM CHLORIDE
  24. PREDNISONE [Concomitant]
     Active Substance: PREDNISONE
  25. PROCHLORPERAZINE MALEATE [Concomitant]
     Active Substance: PROCHLORPERAZINE MALEATE
  26. ROPINIROLE HYDROCHLORIDE [Concomitant]
     Active Substance: ROPINIROLE HYDROCHLORIDE
  27. TRAMADOL HCL [Concomitant]
     Active Substance: TRAMADOL HYDROCHLORIDE
  28. XPOVIO [Concomitant]
     Active Substance: SELINEXOR
  29. SPIRONOLACTONE [Concomitant]
     Active Substance: SPIRONOLACTONE
  30. TORSEMIDE [Concomitant]
     Active Substance: TORSEMIDE
  31. NORCO [Concomitant]
     Active Substance: ACETAMINOPHEN\HYDROCODONE BITARTRATE
  32. TRAZODONE HYDROCHLORIDE [Concomitant]
     Active Substance: TRAZODONE HYDROCHLORIDE
  33. ELIQUIS [Concomitant]
     Active Substance: APIXABAN
  34. ALLOPURINOL [Concomitant]
     Active Substance: ALLOPURINOL
  35. PEPCID [Concomitant]
     Active Substance: FAMOTIDINE
  36. ZOFRAN [Concomitant]
     Active Substance: ONDANSETRON HYDROCHLORIDE
  37. MECLIZINE HYDROCHLORIDE [Concomitant]
     Active Substance: MECLIZINE HYDROCHLORIDE
  38. OLANZAPINE [Concomitant]
     Active Substance: OLANZAPINE
  39. B12 [Concomitant]
  40. VITAMIN D3 [Concomitant]
     Active Substance: CHOLECALCIFEROL
  41. MAGNESIUM OXIDE [Concomitant]
     Active Substance: MAGNESIUM OXIDE
  42. JARDIANCE [Concomitant]
     Active Substance: EMPAGLIFLOZIN
  43. HYDROCODONE BITARTRATE AND ACETAMINOPHEN [Concomitant]
     Active Substance: ACETAMINOPHEN\HYDROCODONE BITARTRATE

REACTIONS (13)
  - Blood pressure decreased [Unknown]
  - Internal haemorrhage [Unknown]
  - Full blood count abnormal [Unknown]
  - Feeling abnormal [Unknown]
  - Fatigue [Unknown]
  - Nausea [Unknown]
  - Gait disturbance [Unknown]
  - Feeding disorder [Unknown]
  - Bedridden [Unknown]
  - Illness [Unknown]
  - Influenza [Not Recovered/Not Resolved]
  - Abdominal discomfort [Not Recovered/Not Resolved]
  - Generalised oedema [Unknown]
